FAERS Safety Report 7857692-4 (Version None)
Quarter: 2011Q4

REPORT INFORMATION
  Report Type: 
  Country: None (occurrence: None)
  Receive Date: 20111027
  Receipt Date: 20111013
  Transmission Date: 20120403
  Serious: Yes (Other)
  Sender: FDA-Public Use
  Company Number: US-RB-028697-11

PATIENT
  Age: 24 Year
  Sex: Male

DRUGS (1)
  1. CLEARASIL ULTRA RAPID ACTION VANISHING TREATMENT CREAM [Suspect]
     Indication: PRODUCT USED FOR UNKNOWN INDICATION
     Route: 061

REACTIONS (3)
  - HAEMATEMESIS [None]
  - RASH [None]
  - HEADACHE [None]
